FAERS Safety Report 24874277 (Version 1)
Quarter: 2025Q1

REPORT INFORMATION
  Report Type: Spontaneous
  Country: LV (occurrence: LV)
  Receive Date: 20250122
  Receipt Date: 20250122
  Transmission Date: 20250409
  Serious: Yes (Hospitalization)
  Sender: PERRIGO
  Company Number: LV-MLMSERVICE-20250109-PI343301-00120-1

PATIENT
  Age: 60 Year
  Sex: Male

DRUGS (1)
  1. DICLOFENAC SODIUM [Suspect]
     Active Substance: DICLOFENAC SODIUM
     Indication: Arthralgia
     Route: 065

REACTIONS (4)
  - Glomerulonephritis minimal lesion [Recovering/Resolving]
  - Renal tubular necrosis [Recovering/Resolving]
  - Nephrotic syndrome [Recovering/Resolving]
  - Acute kidney injury [Recovering/Resolving]
